FAERS Safety Report 7815500-1 (Version None)
Quarter: 2011Q4

REPORT INFORMATION
  Report Type: 
  Country: None (occurrence: None)
  Receive Date: 20111014
  Receipt Date: 20111007
  Transmission Date: 20120403
  Serious: Yes (Hospitalization)
  Sender: FDA-Public Use
  Company Number: PHHY2011FR68211

PATIENT
  Sex: Female

DRUGS (10)
  1. COUMADIN [Concomitant]
     Dosage: 2 MG DAILY
     Dates: start: 19900101
  2. EUPRESSYL [Concomitant]
     Indication: HYPERTENSION
     Dosage: ONCE PER DAY
     Dates: start: 20000101
  3. ACETAMINOPHEN [Concomitant]
     Dosage: UNK UKN, UNK
  4. PRAVASTATIN [Concomitant]
     Indication: HYPERCHOLESTEROLAEMIA
     Dosage: ONCE PER DAY
     Dates: start: 20000101
  5. VALSARTAN  AND HYDROCHLOROTHIAZIDE [Concomitant]
     Indication: HYPERTENSION
     Dosage: ONCE PER DAY
     Dates: start: 20000101
  6. ZOLEDRONOC ACID [Suspect]
     Indication: OSTEOPOROTIC FRACTURE
     Dosage: 5 MG,
     Route: 042
     Dates: start: 20110421
  7. ELAVIL [Concomitant]
     Dosage: UNK UKN, UNK
  8. NITROGLYCERIN [Concomitant]
     Dosage: UNK UKN, UNK
  9. HYPERIUM [Concomitant]
     Indication: HYPERTENSION
     Dosage: UNK UKN, UNK
     Dates: start: 20000101
  10. AMIODARONE HCL [Concomitant]
     Indication: ARRHYTHMIA
     Dosage: 200 MG DAILY
     Dates: start: 20000101

REACTIONS (5)
  - FALL [None]
  - PAIN [None]
  - PYREXIA [None]
  - ESCHERICHIA INFECTION [None]
  - ASTHENIA [None]
